FAERS Safety Report 5076649-2 (Version None)
Quarter: 2006Q3

REPORT INFORMATION
  Report Type: 
  Country: None (occurrence: None)
  Receive Date: 20060807
  Receipt Date: 20060728
  Transmission Date: 20061208
  Serious: Yes (Other)
  Sender: FDA-Public Use
  Company Number: 2006BI009685

PATIENT
  Age: 67 Year
  Sex: Male

DRUGS (15)
  1. AVONEX [Suspect]
     Indication: MULTIPLE SCLEROSIS
     Dosage: 30 UG;QW;IM
     Route: 030
     Dates: start: 20051101
  2. K-DUR 10 [Concomitant]
  3. LISINOPRIL [Concomitant]
  4. COREG [Concomitant]
  5. LANOXIN [Concomitant]
  6. ZOLOFT [Concomitant]
  7. SPIRONOLACTONE [Concomitant]
  8. FUROSEMIDE [Concomitant]
  9. ASPIRIN [Concomitant]
  10. LOVASTATIN [Concomitant]
  11. FERROUS GLUONATE [Concomitant]
  12. HUMALOG [Concomitant]
  13. PREDNISONE [Concomitant]
  14. PEPCID [Concomitant]
  15. MULTI-VITAMIN [Concomitant]

REACTIONS (1)
  - ARRHYTHMIA [None]
